FAERS Safety Report 7997330-3 (Version None)
Quarter: 2011Q4

REPORT INFORMATION
  Report Type: 
  Country: None (occurrence: None)
  Receive Date: 20111221
  Receipt Date: 20111213
  Transmission Date: 20120403
  Serious: No
  Sender: FDA-Public Use
  Company Number: US-JNJFOC-20111206465

PATIENT
  Sex: Female
  Weight: 86.18 kg

DRUGS (8)
  1. ATENOLOL [Concomitant]
     Indication: BLOOD PRESSURE
     Route: 048
  2. NEXIUM [Concomitant]
     Indication: GASTROOESOPHAGEAL REFLUX DISEASE
     Route: 048
  3. FENTANYL-100 [Suspect]
     Indication: ARTHRITIS
     Dosage: NDC NUMBER: 0781-7242-55
     Route: 062
     Dates: start: 20111201
  4. METHOTREXATE [Concomitant]
     Indication: ARTHRITIS
     Route: 048
  5. PREDNISONE TAB [Concomitant]
     Indication: ARTHRITIS
     Route: 048
  6. HYDROCHLOROTHIAZIDE [Concomitant]
     Indication: BLOOD PRESSURE
     Route: 048
  7. FOLIC ACID [Concomitant]
     Route: 048
  8. LEVOTHROID [Concomitant]
     Indication: THYROID DISORDER
     Route: 048

REACTIONS (3)
  - SOMNOLENCE [None]
  - DRUG ADMINISTERED AT INAPPROPRIATE SITE [None]
  - PRODUCT QUALITY ISSUE [None]
